FAERS Safety Report 20763525 (Version 1)
Quarter: 2022Q2

REPORT INFORMATION
  Report Type: Spontaneous
  Country: US (occurrence: US)
  Receive Date: 20220428
  Receipt Date: 20220428
  Transmission Date: 20220721
  Serious: No
  Sender: FDA-Public Use
  Company Number: US-TEVA-2022-US-2031291

PATIENT
  Sex: Female

DRUGS (3)
  1. PRAVASTATIN [Suspect]
     Active Substance: PRAVASTATIN
     Route: 065
  2. DETROL LA [Concomitant]
     Active Substance: TOLTERODINE TARTRATE
  3. TOLTERODINE TARTRATE [Concomitant]
     Active Substance: TOLTERODINE TARTRATE

REACTIONS (3)
  - Arthralgia [Unknown]
  - Gait inability [Unknown]
  - Bone pain [Unknown]
